FAERS Safety Report 10658760 (Version 2)
Quarter: 2014Q4

REPORT INFORMATION
  Report Type: Spontaneous
  Country: US (occurrence: US)
  Receive Date: 20141217
  Receipt Date: 20141217
  Transmission Date: 20150529
  Serious: No
  Sender: FDA-Public Use
  Company Number: US-GLAXOSMITHKLINE-A1071084A

PATIENT

DRUGS (1)
  1. VOTRIENT [Suspect]
     Active Substance: PAZOPANIB HYDROCHLORIDE
     Indication: RENAL CANCER
     Dosage: 200 MG TABLETS. 800 MG DAILY.
     Route: 048
     Dates: start: 20131111

REACTIONS (3)
  - Nausea [Unknown]
  - Product quality issue [Unknown]
  - Vomiting [Unknown]

NARRATIVE: CASE EVENT DATE: 2014
